FAERS Safety Report 7033897-X (Version None)
Quarter: 2010Q4

REPORT INFORMATION
  Report Type: 
  Country: None (occurrence: None)
  Receive Date: 20101007
  Receipt Date: 20100929
  Transmission Date: 20110411
  Serious: Yes (Life-Threatening, Other)
  Sender: FDA-Public Use
  Company Number: US-AMGEN-QUU440208

PATIENT
  Sex: Female

DRUGS (7)
  1. NPLATE [Suspect]
     Indication: IDIOPATHIC THROMBOCYTOPENIC PURPURA
     Dates: start: 20100607
  2. CORTICOSTEROIDS [Concomitant]
     Dates: start: 20100521
  3. PREDNISONE [Concomitant]
  4. LASIX [Concomitant]
  5. OXYCODONE [Concomitant]
  6. PEPCID [Concomitant]
  7. FELDENE [Concomitant]

REACTIONS (1)
  - DEEP VEIN THROMBOSIS [None]
